FAERS Safety Report 7090816-8 (Version None)
Quarter: 2010Q4

REPORT INFORMATION
  Report Type: 
  Country: None (occurrence: None)
  Receive Date: 20101012
  Receipt Date: 20091016
  Transmission Date: 20110411
  Serious: Yes (Other)
  Sender: FDA-Public Use
  Company Number: 1000009519

PATIENT
  Age: 45 Year
  Sex: Female

DRUGS (4)
  1. LEXAPRO [Suspect]
     Indication: DEPRESSION
     Dosage: 10 MG (10 MG, 1 IN 1 D), ORAL
     Route: 048
     Dates: start: 20080101
  2. WELLBUTRIN [Suspect]
     Indication: DEPRESSION
     Dosage: 250 MG (2 IN 1 D), ORAL
     Route: 048
     Dates: start: 20080101
  3. LYRICA [Suspect]
     Indication: FIBROMYALGIA
     Dates: start: 20090101, end: 20090101
  4. LUNESTA [Concomitant]

REACTIONS (2)
  - HOSTILITY [None]
  - SUICIDAL IDEATION [None]
